FAERS Safety Report 8860361 (Version 1)
Quarter: 2012Q4

REPORT INFORMATION
  Report Type: 
  Country: US (occurrence: US)
  Receive Date: 20121025
  Receipt Date: 20121025
  Transmission Date: 20130627
  Serious: Yes (Other)
  Sender: FDA-Public Use
  Company Number: PHEH2012US020616

PATIENT
  Sex: Male

DRUGS (1)
  1. GLEEVEC [Suspect]
     Indication: GASTRIC CANCER
     Dosage: 400 mg, daily
     Route: 048
     Dates: start: 20120712

REACTIONS (3)
  - Sleep apnoea syndrome [Unknown]
  - Hypothyroidism [Unknown]
  - Asthenia [Unknown]
